FAERS Safety Report 6573565-1 (Version None)
Quarter: 2010Q1

REPORT INFORMATION
  Report Type: 
  Country: None (occurrence: None)
  Receive Date: 20100204
  Receipt Date: 20100204
  Transmission Date: 20100710
  Serious: Yes (Hospitalization)
  Sender: FDA-Public Use
  Company Number: None

PATIENT
  Age: 62 Year
  Sex: Male

DRUGS (1)
  1. STANNOUS FLUORIDE [Suspect]
     Dosage: 2 DROPS BID PO
     Route: 048
     Dates: start: 20091210, end: 20091211

REACTIONS (1)
  - ANGIOEDEMA [None]
